FAERS Safety Report 11533535 (Version 1)
Quarter: 2015Q3

REPORT INFORMATION
  Report Type: Spontaneous
  Country: US (occurrence: US)
  Receive Date: 20150921
  Receipt Date: 20150921
  Transmission Date: 20151125
  Serious: No
  Sender: FDA-Public Use
  Company Number: US-SIGMA-TAU US-2014STPI000565

PATIENT
  Age: 82 Year
  Sex: Male

DRUGS (1)
  1. MATULANE [Suspect]
     Active Substance: PROCARBAZINE HYDROCHLORIDE
     Indication: LYMPHOMA
     Dosage: 100 MG, QD
     Route: 048
     Dates: start: 20140813, end: 20140916

REACTIONS (1)
  - Heart alternation [Unknown]

NARRATIVE: CASE EVENT DATE: 201409
